FAERS Safety Report 13792651 (Version 1)
Quarter: 2017Q3

REPORT INFORMATION
  Report Type: Spontaneous
  Country: US (occurrence: US)
  Receive Date: 20170725
  Receipt Date: 20170725
  Transmission Date: 20171127
  Serious: No
  Sender: FDA-Public Use
  Company Number: US-TESARO, INC.-US-2017TSO01120

PATIENT

DRUGS (2)
  1. ZEJULA [Suspect]
     Active Substance: NIRAPARIB
     Indication: OVARIAN CANCER
  2. ZEJULA [Suspect]
     Active Substance: NIRAPARIB
     Indication: COLON CANCER
     Dosage: 300 MG, QD
     Route: 048

REACTIONS (6)
  - Paraesthesia [Unknown]
  - Constipation [Unknown]
  - Headache [Unknown]
  - Arthralgia [Unknown]
  - Product use in unapproved indication [Unknown]
  - Nausea [Unknown]
